FAERS Safety Report 21864725 (Version 1)
Quarter: 2023Q1

REPORT INFORMATION
  Report Type: Spontaneous
  Country: US (occurrence: US)
  Receive Date: 20230116
  Receipt Date: 20230116
  Transmission Date: 20230417
  Serious: No
  Sender: FDA-Public Use
  Company Number: US-drreddys-SPO/USA/22/0159144

PATIENT
  Age: 19 Year
  Sex: Male

DRUGS (2)
  1. ACCUTANE [Suspect]
     Active Substance: ISOTRETINOIN
     Indication: Acne
  2. ACCUTANE [Suspect]
     Active Substance: ISOTRETINOIN
     Dosage: STARTED UP AGAIN THIS MONTH
     Dates: start: 202212

REACTIONS (1)
  - Hepatic enzyme increased [Unknown]
